FAERS Safety Report 5871236-8 (Version None)
Quarter: 2008Q3

REPORT INFORMATION
  Report Type: 
  Country: None (occurrence: None)
  Receive Date: 20080905
  Receipt Date: 20080826
  Transmission Date: 20090109
  Serious: Yes (Other)
  Sender: FDA-Public Use
  Company Number: GB-RANBAXY-2008RR-17605

PATIENT

DRUGS (6)
  1. CLARITHROMYCIN [Suspect]
     Indication: LOWER RESPIRATORY TRACT INFECTION
     Dosage: UNK
  2. SIMVASTATIN [Concomitant]
  3. GLICAZIDE [Concomitant]
  4. OMEPRAZOLE [Concomitant]
  5. ALENDRONIC ACID [Concomitant]
  6. ACETAMINOPHEN [Concomitant]

REACTIONS (3)
  - AMNESIA [None]
  - CONFUSIONAL STATE [None]
  - MYALGIA [None]
